FAERS Safety Report 13045693 (Version 1)
Quarter: 2016Q4

REPORT INFORMATION
  Report Type: Report from Study
  Country: None (occurrence: US)
  Receive Date: 20161220
  Receipt Date: 20161220
  Transmission Date: 20170207
  Serious: No
  Sender: FDA-Public Use
  Company Number: US-BIOVITRUM-2015US0618

PATIENT
  Age: 9 Year
  Sex: Female
  Weight: 29.51 kg

DRUGS (1)
  1. KINERET [Suspect]
     Active Substance: ANAKINRA
     Indication: JUVENILE IDIOPATHIC ARTHRITIS
     Route: 058

REACTIONS (1)
  - Fungal infection [Recovering/Resolving]

NARRATIVE: CASE EVENT DATE: 201509
